FAERS Safety Report 9366824 (Version 1)
Quarter: 2013Q2

REPORT INFORMATION
  Report Type: Spontaneous
  Country: JP (occurrence: None)
  Receive Date: 20130620
  Receipt Date: 20130620
  Transmission Date: 20140414
  Serious: Yes (Other)
  Sender: FDA-Public Use
  Company Number: SYM-2013-04876

PATIENT
  Age: 49 Year
  Sex: Male

DRUGS (7)
  1. FLUOROURACIL (FLUOROURACIL)(FLUOROURACIL) [Suspect]
     Indication: OESOPHAGEAL SQUAMOUS CELL CARCINOMA STAGE IV
     Dates: start: 2010, end: 2010
  2. DOCETAXEL [Suspect]
     Indication: OESOPHAGEAL SQUAMOUS CELL CARCINOMA STAGE IV
     Dosage: EVERY CYCLE
     Dates: start: 2010, end: 2010
  3. CISPLATIN [Suspect]
     Indication: OESOPHAGEAL SQUAMOUS CELL CARCINOMA STAGE IV
     Dates: start: 2010, end: 2010
  4. THERAPEUTIC RADIOPHARMACEUTICALS THERAPEUTIC RADIOPHARMACEUTICALS) [Suspect]
     Indication: OESOPHAGEAL SQUAMOUS CELL CARCINOMA STAGE IV
     Dates: start: 2010, end: 2010
  5. ANTIBIOTICS ANTIBIOTICS) [Concomitant]
  6. CORTICOSTEROIDS (CORTICOSTEROIDS) [Concomitant]
  7. MORPHINE HYDROCHLORIDE MORPHINE HYDROCHLORIDE)(MORPHINE HYDROCHLORIDE) [Concomitant]

REACTIONS (1)
  - Febrile neutropenia [None]
